FAERS Safety Report 25526136 (Version 2)
Quarter: 2025Q3

REPORT INFORMATION
  Report Type: Report from Study
  Country: US (occurrence: US)
  Receive Date: 20250707
  Receipt Date: 20250731
  Transmission Date: 20251021
  Serious: Yes (Other)
  Sender: CALLIDITAS THERAPEUTICS AB
  Company Number: US-Calliditas-2025CAL01327

PATIENT
  Age: 62 Year
  Sex: Male

DRUGS (19)
  1. TARPEYO [Suspect]
     Active Substance: BUDESONIDE
     Indication: IgA nephropathy
     Route: 048
     Dates: start: 20250322, end: 20250718
  2. OMEPRAZOLE [Concomitant]
     Active Substance: OMEPRAZOLE
  3. ASPIRIN [Concomitant]
     Active Substance: ASPIRIN
  4. NIFEDIPINE [Concomitant]
     Active Substance: NIFEDIPINE
  5. OZEMPIC [Concomitant]
     Active Substance: SEMAGLUTIDE
  6. NITROGLYCERIN [Concomitant]
     Active Substance: NITROGLYCERIN
  7. BREO ELLIPTA [Concomitant]
     Active Substance: FLUTICASONE FUROATE\VILANTEROL TRIFENATATE
  8. TIOTROPIUM [Concomitant]
     Active Substance: TIOTROPIUM
  9. TRIAMCINOLONE [Concomitant]
     Active Substance: TRIAMCINOLONE
  10. CARVEDILOL [Concomitant]
     Active Substance: CARVEDILOL
  11. AMMONIUM LACTATE [Concomitant]
     Active Substance: AMMONIUM LACTATE
  12. ISOSORBIDE MONONITRATE [Concomitant]
     Active Substance: ISOSORBIDE MONONITRATE
  13. CLOPIDOGREL [Concomitant]
     Active Substance: CLOPIDOGREL BISULFATE
  14. LANTUS [Concomitant]
     Active Substance: INSULIN GLARGINE
  15. HYDROXYZINE CRISTERS [Concomitant]
  16. AMMONIUM LACTATE [Concomitant]
     Active Substance: AMMONIUM LACTATE
  17. PRAVASTATIN [Concomitant]
     Active Substance: PRAVASTATIN
  18. KETOCONAZOLE CRISTERS [Concomitant]
  19. ALBUTEROL SULFATE [Concomitant]
     Active Substance: ALBUTEROL SULFATE

REACTIONS (3)
  - Cataract [Not Recovered/Not Resolved]
  - Kidney fibrosis [Not Recovered/Not Resolved]
  - Night blindness [Not Recovered/Not Resolved]

NARRATIVE: CASE EVENT DATE: 20250604
